FAERS Safety Report 8557315 (Version 7)
Quarter: 2014Q1

REPORT INFORMATION
  Report Type: Report from Study
  Country: IN (occurrence: IN)
  Receive Date: 20120511
  Receipt Date: 20140203
  Transmission Date: 20141002
  Serious: Yes (Disabling)
  Sender: FDA-Public Use
  Company Number: PHHO2012IN006756

PATIENT
  Sex: 0

DRUGS (9)
  1. CERTICAN [Suspect]
     Indication: RENAL TRANSPLANT
     Dosage: 1.25 MG, BID
     Route: 048
     Dates: start: 20110823, end: 20120430
  2. NEORAL [Suspect]
     Indication: RENAL TRANSPLANT
     Dosage: 75 MG, BID
     Dates: start: 20110613, end: 20110623
  3. NEORAL [Suspect]
     Dosage: 75 MG, BID
     Dates: end: 20130606
  4. MYFORTIC [Concomitant]
     Indication: RENAL TRANSPLANT
     Dosage: 360 MG, TID
     Route: 048
     Dates: start: 20110613
  5. SEPTRAN [Concomitant]
     Indication: PROPHYLAXIS
     Dosage: 75 MG, QD
     Route: 048
     Dates: start: 20110614, end: 20120429
  6. RANTAC [Concomitant]
     Indication: ANTACID THERAPY
     Dosage: 150 MG, QD
     Route: 048
     Dates: start: 20110621
  7. SELOKEN [Concomitant]
     Indication: HYPERTENSION
     Dosage: 25 MG, BID
     Route: 048
     Dates: start: 20110621
  8. AZTOR ASP [Concomitant]
     Indication: DYSLIPIDAEMIA
     Dosage: 10 MG, QD
     Route: 048
     Dates: start: 20110915, end: 20120429
  9. WYSOLONE [Concomitant]
     Indication: PROPHYLAXIS
     Dosage: 5 MG, QD
     Route: 048
     Dates: start: 20110614, end: 20120429

REACTIONS (2)
  - Osteonecrosis [Recovered/Resolved with Sequelae]
  - Myopathy [Recovered/Resolved with Sequelae]
